FAERS Safety Report 25723451 (Version 1)
Quarter: 2025Q3

REPORT INFORMATION
  Report Type: Spontaneous
  Country: EU (occurrence: EU)
  Receive Date: 20250825
  Receipt Date: 20250825
  Transmission Date: 20251020
  Serious: Yes (Death, Other)
  Sender: PFIZER
  Company Number: EU-PFIZER INC-PV202500101391

PATIENT
  Age: 51 Year
  Sex: Male

DRUGS (1)
  1. BESPONSA [Suspect]
     Active Substance: INOTUZUMAB OZOGAMICIN
     Indication: B-cell type acute leukaemia
     Dates: start: 202309

REACTIONS (1)
  - Death [Fatal]

NARRATIVE: CASE EVENT DATE: 20230901
